FAERS Safety Report 8496266-1 (Version None)
Quarter: 2012Q3

REPORT INFORMATION
  Report Type: 
  Country: None (occurrence: None)
  Receive Date: 20120709
  Receipt Date: 20120703
  Transmission Date: 20120928
  Serious: Yes (Other)
  Sender: FDA-Public Use
  Company Number: BR-PFIZER INC-2012160152

PATIENT
  Age: 58 Year
  Sex: Female
  Weight: 92 kg

DRUGS (14)
  1. LYRICA [Suspect]
     Indication: PAIN
     Dosage: UNK
     Route: 048
     Dates: start: 20100101
  2. DIOVAN [Concomitant]
     Indication: BLOOD PRESSURE
     Dosage: UNK
     Dates: start: 20040101
  3. EFFEXOR XR [Concomitant]
     Indication: HYPERSOMNIA
     Dosage: UNK
     Dates: start: 20100101
  4. OMEPRAZOLE [Concomitant]
     Indication: GASTRIC DISORDER
     Dosage: UNK
     Dates: start: 20111201
  5. GLUCOSAMINE SULFATE [Concomitant]
     Indication: CHONDROPLASTY
     Dosage: UNK
     Dates: start: 20120515
  6. CHLORTALIDONE [Concomitant]
     Indication: BLOOD PRESSURE
     Dosage: UNK
     Dates: start: 19970101
  7. CLONAZEPAM [Concomitant]
     Indication: SLEEP DISORDER
     Dosage: UNK
     Dates: start: 20100101
  8. PARACETAMOL [Concomitant]
     Indication: PAIN
     Dosage: UNK
     Dates: start: 20100101
  9. TOPIRAMATE [Concomitant]
     Indication: HYPERSOMNIA
     Dosage: UNK
     Dates: start: 20100101
  10. LYRICA [Suspect]
     Indication: INTERVERTEBRAL DISC PROTRUSION
  11. VITAMIN TAB [Concomitant]
     Indication: VITAMIN SUPPLEMENTATION
     Dosage: UNK
     Dates: start: 20120301
  12. ATENOLOL [Concomitant]
     Indication: BLOOD PRESSURE
     Dosage: UNK
     Dates: start: 19970101
  13. IBUPROFEN [Concomitant]
     Indication: PAIN
     Dosage: UNK
     Dates: start: 20111201
  14. LEVOTHYROXINE SODIUM [Concomitant]
     Indication: THYROID DISORDER
     Dosage: UNK
     Dates: start: 20120305

REACTIONS (5)
  - MENISCUS LESION [None]
  - DRUG INEFFECTIVE [None]
  - THROAT CANCER [None]
  - THYROID DISORDER [None]
  - LIGAMENT INJURY [None]
